FAERS Safety Report 15190688 (Version 4)
Quarter: 2018Q4

REPORT INFORMATION
  Report Type: Report from Study
  Country: ZA (occurrence: ZA)
  Receive Date: 20180724
  Receipt Date: 20181010
  Transmission Date: 20190204
  Serious: Yes (Hospitalization, Other)
  Sender: FDA-Public Use
  Company Number: PHHY2018ZA051773

PATIENT
  Age: 70 Year
  Sex: Female

DRUGS (4)
  1. ACLASTA [Suspect]
     Active Substance: ZOLEDRONIC ACID
     Dosage: 1 DF, Q12MO
     Route: 042
     Dates: start: 2017
  2. ACLASTA [Suspect]
     Active Substance: ZOLEDRONIC ACID
     Dosage: 1 DF, Q12MO
     Route: 042
     Dates: start: 2018, end: 2018
  3. ELTROXIN [Concomitant]
     Active Substance: LEVOTHYROXINE
     Indication: HYPOTHYROIDISM
     Dosage: UNK
     Route: 065
  4. ACLASTA [Suspect]
     Active Substance: ZOLEDRONIC ACID
     Indication: OSTEOPOROSIS
     Dosage: 1 DF (5 MG/100 ML), Q12MO
     Route: 042
     Dates: start: 2016, end: 2017

REACTIONS (11)
  - Muscle rupture [Recovering/Resolving]
  - Adenoma benign [Unknown]
  - Myalgia [Unknown]
  - Fall [Unknown]
  - Alopecia [Unknown]
  - Contusion [Unknown]
  - Inflammation [Unknown]
  - Femur fracture [Recovering/Resolving]
  - Bone density decreased [Unknown]
  - Hip fracture [Recovering/Resolving]
  - Neck mass [Unknown]

NARRATIVE: CASE EVENT DATE: 2017
